FAERS Safety Report 7749344-6 (Version None)
Quarter: 2011Q3

REPORT INFORMATION
  Report Type: 
  Country: None (occurrence: None)
  Receive Date: 20110908
  Receipt Date: 20110901
  Transmission Date: 20111222
  Serious: Yes (Life-Threatening, Other)
  Sender: FDA-Public Use
  Company Number: 2011SP041482

PATIENT
  Age: 4 Year

DRUGS (1)
  1. TEMOZOLOMIDE [Suspect]
     Indication: ASTROCYTOMA
     Dosage: 50 MG/M2;;QD ; 200 MG/M2;QD ; 160 MG/M2;QD

REACTIONS (6)
  - ANAEMIA [None]
  - THROMBOCYTOPENIA [None]
  - LEUKOPENIA [None]
  - NEOPLASM PROGRESSION [None]
  - ASTROCYTOMA [None]
  - FEBRILE NEUTROPENIA [None]
